FAERS Safety Report 4628990-2 (Version None)
Quarter: 2005Q2

REPORT INFORMATION
  Report Type: 
  Country: None (occurrence: None)
  Receive Date: 20050405
  Receipt Date: 20050405
  Transmission Date: 20051028
  Serious: Yes (Death)
  Sender: FDA-Public Use
  Company Number: None

PATIENT
  Age: 33 Year
  Sex: Male
  Weight: 81.6475 kg

DRUGS (3)
  1. ABILIFY [Suspect]
     Indication: BIPOLAR DISORDER
     Dosage: DAILY
  2. ZOLOFT [Suspect]
     Dosage: DAILY
  3. CLOZARIL [Suspect]

REACTIONS (4)
  - COMPLETED SUICIDE [None]
  - DRUG INTERACTION [None]
  - PARADOXICAL DRUG REACTION [None]
  - SUICIDAL IDEATION [None]
